FAERS Safety Report 5910074-4 (Version None)
Quarter: 2008Q4

REPORT INFORMATION
  Report Type: 
  Country: None (occurrence: None)
  Receive Date: 20081007
  Receipt Date: 20080229
  Transmission Date: 20090506
  Serious: No
  Sender: FDA-Public Use
  Company Number: US-ASTRAZENECA-2007UW20724

PATIENT
  Age: 76 Year
  Sex: Female
  Weight: 67.1 kg

DRUGS (5)
  1. ARIMIDEX [Suspect]
     Indication: BREAST CANCER FEMALE
     Route: 048
     Dates: start: 20070801
  2. STEROID [Suspect]
  3. NORVASC [Concomitant]
  4. ZOCOR [Concomitant]
  5. HERCEPTIN [Concomitant]

REACTIONS (10)
  - ARTHRALGIA [None]
  - BLOOD CHOLESTEROL INCREASED [None]
  - BONE PAIN [None]
  - DECREASED APPETITE [None]
  - HOT FLUSH [None]
  - NAUSEA [None]
  - OSTEOPENIA [None]
  - PAIN IN EXTREMITY [None]
  - RESTLESSNESS [None]
  - WEIGHT INCREASED [None]
